FAERS Safety Report 6011458-9 (Version None)
Quarter: 2008Q4

REPORT INFORMATION
  Report Type: 
  Country: None (occurrence: None)
  Receive Date: 20081218
  Receipt Date: 20060727
  Transmission Date: 20090506
  Serious: Yes (Death, Hospitalization)
  Sender: FDA-Public Use
  Company Number: NL-ROCHE-424703

PATIENT
  Sex: Male

DRUGS (11)
  1. CAPECITABINE [Suspect]
     Dosage: GIVEN ON DAYS 1 TO 14 EVERY THREE WEEK CYCLE.
     Route: 048
     Dates: start: 20051019, end: 20051219
  2. BEVACIZUMAB [Suspect]
     Route: 042
     Dates: start: 20051019
  3. OXALIPLATIN [Suspect]
     Route: 042
     Dates: start: 20051019
  4. CETUXIMAB [Suspect]
     Dosage: GIVEN DAYS 1, 8 AND 15 EVERY 3 WEEK CYCLE.
     Route: 042
     Dates: start: 20051026
  5. CETUXIMAB [Suspect]
     Dosage: INDUCTION THERAPY - ONE DOSE ONLY.
     Route: 042
     Dates: start: 20051019, end: 20051019
  6. LACTULOSE [Concomitant]
     Dates: start: 20051020
  7. MAGNESIUM HYDROXIDE TAB [Concomitant]
  8. ZOFRAN [Concomitant]
  9. PANTOPRAZOL [Concomitant]
  10. LOPERAMIDE HCL [Concomitant]
  11. PRIMPERAN TAB [Concomitant]

REACTIONS (7)
  - DEATH [None]
  - DEHYDRATION [None]
  - DIARRHOEA [None]
  - HYPOPHAGIA [None]
  - MUCOSAL INFLAMMATION [None]
  - NAUSEA [None]
  - VOMITING [None]
